FAERS Safety Report 8586485-8 (Version None)
Quarter: 2012Q3

REPORT INFORMATION
  Report Type: 
  Country: None (occurrence: None)
  Receive Date: 20120810
  Receipt Date: 20120803
  Transmission Date: 20120928
  Serious: Yes (Death)
  Sender: FDA-Public Use
  Company Number: AU-BRISTOL-MYERS SQUIBB COMPANY-16842205

PATIENT
  Age: 73 Year
  Sex: Female
  Weight: 54 kg

DRUGS (13)
  1. FOLIC ACID [Concomitant]
  2. LIPITOR [Concomitant]
  3. FUROSEMIDE [Concomitant]
  4. SPIRONOLACTONE [Concomitant]
  5. CALCIUM [Concomitant]
  6. METHOTREXATE [Concomitant]
  7. ORENCIA [Suspect]
     Indication: RHEUMATOID ARTHRITIS
     Route: 042
     Dates: start: 20101013, end: 20120609
  8. ASPIRIN [Concomitant]
  9. WARFARIN SODIUM [Concomitant]
  10. PREDNISONE TAB [Concomitant]
  11. FENTANYL [Concomitant]
  12. BICOR [Concomitant]
  13. NEXIUM [Concomitant]

REACTIONS (1)
  - DEATH [None]
